FAERS Safety Report 5287907-0 (Version None)
Quarter: 2007Q2

REPORT INFORMATION
  Report Type: 
  Country: None (occurrence: None)
  Receive Date: 20070405
  Receipt Date: 20070328
  Transmission Date: 20071010
  Serious: Yes (Death, Life-Threatening)
  Sender: FDA-Public Use
  Company Number: HQWYE064229MAR07

PATIENT
  Age: 54 Year
  Sex: Male

DRUGS (15)
  1. AVLOCARDYL [Suspect]
     Route: 048
     Dates: start: 20070308, end: 20070308
  2. SUTENT [Suspect]
     Route: 048
     Dates: start: 20070213, end: 20070309
  3. TRIATEC [Suspect]
     Indication: HYPERTENSION
     Route: 048
     Dates: start: 20070305, end: 20070308
  4. INDAPAMIDE [Suspect]
     Indication: HYPERTENSION
     Route: 048
     Dates: start: 20070305, end: 20070308
  5. TRIFLUCAN [Suspect]
     Route: 048
     Dates: start: 20070205, end: 20070308
  6. FUMAFER [Concomitant]
     Dosage: UNSPECIFIED
     Dates: start: 20070215, end: 20070309
  7. EUPRESSYL [Suspect]
     Indication: HYPERTENSION
     Route: 048
     Dates: start: 20070227, end: 20070227
  8. EUPRESSYL [Suspect]
     Route: 048
     Dates: start: 20070228, end: 20070228
  9. EUPRESSYL [Suspect]
     Route: 048
     Dates: start: 20070301, end: 20070303
  10. EUPRESSYL [Suspect]
     Route: 048
     Dates: start: 20070304, end: 20070309
  11. DURAGESIC-100 [Concomitant]
     Dosage: UNSPECIFIED
     Dates: start: 20070215, end: 20070309
  12. ACTISKENAN [Concomitant]
     Dosage: UNSPECIFIED
     Dates: start: 20070215, end: 20070309
  13. LYSANXIA [Concomitant]
     Dosage: UNSPECIFIED
     Dates: start: 20070306, end: 20070309
  14. SOLU-MEDROL [Concomitant]
     Dosage: UNSPECIFIED
     Dates: start: 20070215, end: 20070310
  15. VALACYCLOVIR HCL [Concomitant]
     Dosage: UNSPECIFIED
     Dates: start: 20070307, end: 20070309

REACTIONS (2)
  - CARDIAC FAILURE CONGESTIVE [None]
  - PULMONARY OEDEMA [None]
